FAERS Safety Report 22333984 (Version 1)
Quarter: 2023Q2

REPORT INFORMATION
  Report Type: Report from Study
  Country: US (occurrence: US)
  Receive Date: 20230517
  Receipt Date: 20230517
  Transmission Date: 20230721
  Serious: Yes (Hospitalization, Other)
  Sender: FDA-Public Use
  Company Number: US-IPSEN Group, Research and Development-2022-12286

PATIENT
  Age: 57 Year
  Sex: Male
  Weight: 69.4 kg

DRUGS (28)
  1. ONIVYDE [Suspect]
     Active Substance: IRINOTECAN HYDROCHLORIDE
     Indication: Gastrooesophageal cancer
     Route: 042
     Dates: start: 20220421, end: 20220421
  2. ONIVYDE [Suspect]
     Active Substance: IRINOTECAN HYDROCHLORIDE
     Indication: Gastric cancer
     Route: 042
     Dates: start: 20220707, end: 20220707
  3. ONIVYDE [Suspect]
     Active Substance: IRINOTECAN HYDROCHLORIDE
     Route: 042
     Dates: start: 20220728, end: 20220728
  4. FLUOROURACIL\LEUCOVORIN CALCIUM\OXALIPLATIN [Suspect]
     Active Substance: FLUOROURACIL\LEUCOVORIN CALCIUM\OXALIPLATIN
     Indication: Gastrooesophageal cancer
     Dosage: DOSE NOT REPORTED
     Route: 042
     Dates: start: 20220421
  5. FLUOROURACIL\LEUCOVORIN CALCIUM\OXALIPLATIN [Suspect]
     Active Substance: FLUOROURACIL\LEUCOVORIN CALCIUM\OXALIPLATIN
     Indication: Gastric cancer
  6. ABRAXANE [Suspect]
     Active Substance: PACLITAXEL
     Indication: Gastrooesophageal cancer
     Dosage: DOSE NOT REPORTED
     Route: 065
     Dates: start: 20220421
  7. ABRAXANE [Suspect]
     Active Substance: PACLITAXEL
     Indication: Gastric cancer
  8. PARAPLATIN [Suspect]
     Active Substance: CARBOPLATIN
     Indication: Gastrooesophageal cancer
     Dosage: DOSE NOT REPORTED
     Route: 065
     Dates: start: 20220421
  9. PARAPLATIN [Suspect]
     Active Substance: CARBOPLATIN
     Indication: Gastric cancer
  10. OXALIPLATIN [Suspect]
     Active Substance: OXALIPLATIN
     Indication: Oesophageal carcinoma
     Route: 042
     Dates: start: 20220421, end: 20220421
  11. OXALIPLATIN [Suspect]
     Active Substance: OXALIPLATIN
     Indication: Gastric cancer
  12. DULCOLAX NOS [Concomitant]
     Active Substance: BISACODYL OR DOCUSATE SODIUM
  13. FOLIC ACID [Concomitant]
     Active Substance: FOLIC ACID
  14. LACTULOSE [Concomitant]
     Active Substance: LACTULOSE
  15. ONDANSETRON [Concomitant]
     Active Substance: ONDANSETRON
  16. PANTOPRAZOLE [Concomitant]
     Active Substance: PANTOPRAZOLE
  17. NEULASTA [Concomitant]
     Active Substance: PEGFILGRASTIM
  18. POLYETHYLENE GLYCOL [Concomitant]
     Active Substance: POLYETHYLENE GLYCOL
  19. PROCHLORPERAZINE [Concomitant]
     Active Substance: PROCHLORPERAZINE
  20. SUCRALFATE [Concomitant]
     Active Substance: SUCRALFATE
  21. MULTIVITAMINS WITH IRON-FOLIC ACID [Concomitant]
  22. OMEPRAZOLE [Concomitant]
     Active Substance: OMEPRAZOLE
     Dates: start: 20220606, end: 20220908
  23. CARAFATE [Concomitant]
     Active Substance: SUCRALFATE
     Dates: start: 20220607, end: 20220916
  24. OXYCODONE [Concomitant]
     Active Substance: OXYCODONE
     Dates: start: 20220607, end: 20220707
  25. MIDODRINE [Concomitant]
     Active Substance: MIDODRINE
     Dates: start: 20220507, end: 20220727
  26. FOLIC ACID [Concomitant]
     Active Substance: FOLIC ACID
     Dates: start: 20220204, end: 20220607
  27. MIRALAX [Concomitant]
     Active Substance: POLYETHYLENE GLYCOL 3350
     Dates: start: 20220608, end: 20221116
  28. MULTIVITAMINS WITH IRON-FOLIC ACID [Concomitant]
     Dates: start: 20220204, end: 20220607

REACTIONS (20)
  - Abdominal pain [Unknown]
  - Nausea [Unknown]
  - Constipation [Unknown]
  - Vomiting [Unknown]
  - Hypophagia [Unknown]
  - Leukocytosis [Unknown]
  - Failure to thrive [Unknown]
  - Pulmonary embolism [Unknown]
  - Gastrointestinal haemorrhage [Unknown]
  - Sepsis [Unknown]
  - Central venous catheterisation [Unknown]
  - Deep vein thrombosis [Unknown]
  - Infection [Unknown]
  - Abdominal pain [Unknown]
  - Constipation [Unknown]
  - Vomiting [Unknown]
  - Nausea [Unknown]
  - Embolism [Unknown]
  - Dyspnoea [Unknown]
  - Chest pain [Recovered/Resolved]

NARRATIVE: CASE EVENT DATE: 20220101
